FAERS Safety Report 9303855 (Version 1)
Quarter: 2013Q2

REPORT INFORMATION
  Report Type: Spontaneous
  Country: MX (occurrence: MX)
  Receive Date: 20130522
  Receipt Date: 20130522
  Transmission Date: 20140414
  Serious: Yes (Hospitalization)
  Sender: FDA-Public Use
  Company Number: MX-UCBSA-086711

PATIENT
  Age: 77 Year
  Sex: Male

DRUGS (9)
  1. ULSEN [Suspect]
     Indication: GASTRIC DISORDER
     Dates: start: 2011
  2. AROPAX [Suspect]
     Indication: NERVOUSNESS
     Dosage: DAILY DOSE: 20MG
     Route: 048
     Dates: start: 2009
  3. RIVOTRIL [Suspect]
     Dosage: DALY DOSE: 1.5 UNSPECIFIED UNITS
     Dates: start: 2009
  4. ASPIRIN PROTECT [Suspect]
     Indication: PAIN
     Dates: start: 2012
  5. EPAMIN [Suspect]
     Dates: start: 2009
  6. COMPETACT [Suspect]
     Dates: start: 2011
  7. LIBERTRIM [Suspect]
     Indication: ASPHYXIA
     Dosage: DAILY DOSE: 0.5 UNSPECIFIED UNITS
     Dates: start: 2011
  8. COLCHIQUIM [Suspect]
     Dates: start: 2009
  9. AVELOX [Suspect]
     Dates: start: 2011

REACTIONS (1)
  - Dehydration [Recovered/Resolved]
